FAERS Safety Report 6675822-7 (Version None)
Quarter: 2010Q2

REPORT INFORMATION
  Report Type: 
  Country: None (occurrence: None)
  Receive Date: 20100412
  Receipt Date: 20100401
  Transmission Date: 20101027
  Serious: Yes (Hospitalization, Other)
  Sender: FDA-Public Use
  Company Number: US-BIOGENIDEC-2010BI002941

PATIENT
  Age: 45 Year
  Sex: Female

DRUGS (2)
  1. AVONEX [Suspect]
     Indication: MULTIPLE SCLEROSIS
     Route: 030
     Dates: start: 19961101
  2. AVONEX [Suspect]
     Route: 030
     Dates: start: 20010901

REACTIONS (10)
  - ATRIAL TACHYCARDIA [None]
  - CARDIAC TAMPONADE [None]
  - CARDIOMYOPATHY [None]
  - CHEST PAIN [None]
  - FEMALE STERILISATION [None]
  - LYMPHADENOPATHY MEDIASTINAL [None]
  - MAXILLOFACIAL OPERATION [None]
  - MITRAL VALVE INCOMPETENCE [None]
  - PERICARDIAL EFFUSION [None]
  - VIRAL PERICARDITIS [None]
